FAERS Safety Report 14958461 (Version 1)
Quarter: 2018Q2

REPORT INFORMATION
  Report Type: Spontaneous
  Country: FR (occurrence: FR)
  Receive Date: 20180531
  Receipt Date: 20180531
  Transmission Date: 20180711
  Serious: Yes (Life-Threatening, Hospitalization)
  Sender: FDA-Public Use
  Company Number: FR-AUROBINDO-AUR-APL-2018-027253

PATIENT
  Age: 82 Year
  Sex: Female

DRUGS (12)
  1. LANSOPRAZOLE MYLAN [Concomitant]
     Active Substance: LANSOPRAZOLE
     Indication: PRODUCT USED FOR UNKNOWN INDICATION
     Dosage: 15 MILLIGRAM, ONCE A DAY
     Route: 048
     Dates: start: 20171017
  2. KARDEGIC [Concomitant]
     Active Substance: ASPIRIN DL-LYSINE
     Indication: PRODUCT USED FOR UNKNOWN INDICATION
     Dosage: 75 MILLIGRAM, ONCE A DAY
     Route: 048
     Dates: start: 20170605, end: 20171123
  3. CRESTOR [Concomitant]
     Active Substance: ROSUVASTATIN CALCIUM
     Indication: HYPERCHOLESTEROLAEMIA
     Dosage: UNK
     Route: 065
  4. ESCITALOPRAM ARROW FILM-COATED TABLET 10MG [Suspect]
     Active Substance: ESCITALOPRAM OXALATE
     Dosage: 20 MILLIGRAM, ONCE A DAY
     Route: 048
     Dates: start: 20180124, end: 20180205
  5. L THYROXINE SERB [Concomitant]
     Active Substance: LEVOTHYROXINE SODIUM
     Indication: HYPOTHYROIDISM
     Dosage: 40 MICROGRAM, ONCE A DAY
     Route: 048
     Dates: start: 20170615
  6. BISOPROLOL ACCORD [Concomitant]
     Active Substance: BISOPROLOL
     Indication: HYPERTENSION
     Dosage: UNK
     Route: 048
  7. EFFERALGAN [Concomitant]
     Active Substance: ACETAMINOPHEN
     Indication: PRODUCT USED FOR UNKNOWN INDICATION
     Dosage: 3 GRAM, ONCE A DAY
     Route: 048
     Dates: start: 20170605
  8. PRIMPERAN [Concomitant]
     Active Substance: METOCLOPRAMIDE HYDROCHLORIDE
     Indication: PROPHYLAXIS OF NAUSEA AND VOMITING
     Dosage: 30 MILLIGRAM, ONCE A DAY, (SI NAUS?ES ET/OU VOMISSEMENTS)
     Route: 048
     Dates: start: 20171005
  9. ESCITALOPRAM ARROW FILM-COATED TABLET 10MG [Suspect]
     Active Substance: ESCITALOPRAM OXALATE
     Indication: DEPRESSION
     Dosage: 10 MILLIGRAM, ONCE A DAY
     Route: 048
     Dates: start: 20171205, end: 20180124
  10. OGAST [Concomitant]
     Active Substance: LANSOPRAZOLE
     Indication: HIATUS HERNIA
     Dosage: UNK
     Route: 065
  11. PRETERAX                           /01421201/ [Concomitant]
     Active Substance: INDAPAMIDE\PERINDOPRIL
     Indication: HYPERTENSION
     Dosage: UNK
     Route: 048
  12. LACTULOSE SANDOZ [Concomitant]
     Indication: PRODUCT USED FOR UNKNOWN INDICATION
     Dosage: 40 MILLIGRAM, ONCE A DAY
     Route: 048
     Dates: start: 20170725

REACTIONS (1)
  - Generalised tonic-clonic seizure [Recovering/Resolving]
